FAERS Safety Report 8935677 (Version 3)
Quarter: 2013Q3

REPORT INFORMATION
  Report Type: Report from Study
  Country: JP (occurrence: JP)
  Receive Date: 20121130
  Receipt Date: 20130904
  Transmission Date: 20140515
  Serious: Yes (Other)
  Sender: FDA-Public Use
  Company Number: JP-VERTEX PHARMACEUTICAL INC.-2012-025297

PATIENT
  Age: 42 Year
  Sex: Male

DRUGS (19)
  1. VX-950 (TELAPREVIR) [Suspect]
     Indication: CHRONIC HEPATITIS C
     Dosage: 2250 MG, QD
     Route: 048
     Dates: start: 20120601, end: 20120605
  2. VX-950 (TELAPREVIR) [Suspect]
     Dosage: 1500 MG, QD
     Route: 048
     Dates: start: 20120606, end: 20120606
  3. VX-950 (TELAPREVIR) [Suspect]
     Dosage: 2250 MG, QD
     Route: 048
     Dates: start: 20120607, end: 20120823
  4. RIBAVIRIN [Suspect]
     Indication: CHRONIC HEPATITIS C
     Dosage: 1000 MG, QD
     Route: 048
     Dates: start: 20120601, end: 20120605
  5. RIBAVIRIN [Suspect]
     Dosage: 600 MG, QD
     Route: 048
     Dates: start: 20120606, end: 20120606
  6. RIBAVIRIN [Suspect]
     Dosage: 1000 MG, QD
     Route: 048
     Dates: start: 20120607, end: 20120823
  7. RIBAVIRIN [Suspect]
     Dosage: 800 MG, QD
     Route: 048
     Dates: start: 20120824, end: 20120920
  8. RIBAVIRIN [Suspect]
     Dosage: 1000 MG, QD
     Route: 048
     Dates: start: 20120921, end: 20121115
  9. PEGINTERFERON ALFA-2B [Suspect]
     Indication: CHRONIC HEPATITIS C
     Dosage: 1.3 ?G/KG, QW
     Route: 058
     Dates: start: 20120601, end: 20121109
  10. URSO [Concomitant]
     Dosage: 600 MG, QD
     Route: 048
  11. NOVORAPID MIX [Concomitant]
     Dosage: 60 ML, QD
     Route: 058
  12. GLIMICRON [Concomitant]
     Dosage: 40 MG, QD
     Route: 048
  13. NU-LOTAN [Concomitant]
     Dosage: 50 MG, QD
     Route: 048
  14. JANUVIA [Concomitant]
     Dosage: 50 MG, QD
     Route: 048
  15. ALLELOCK [Concomitant]
     Dosage: 10 MG, QD
     Route: 048
     Dates: end: 20121115
  16. LOXOPROFEN [Concomitant]
     Dosage: 60 MG, QD
     Route: 048
     Dates: start: 20120601, end: 20120618
  17. LOXOPROFEN [Concomitant]
     Dosage: 120 MG, QD
     Route: 048
     Dates: start: 20120720, end: 20121115
  18. MUCOSTA [Concomitant]
     Dosage: 100 MG, QD
     Route: 048
     Dates: start: 20120601, end: 20120618
  19. MUCOSTA [Concomitant]
     Dosage: 200 MG, QD
     Route: 048
     Dates: start: 20120720, end: 20121115

REACTIONS (3)
  - Neutrophil count decreased [Recovered/Resolved]
  - Neutrophil count decreased [Recovered/Resolved]
  - Retinopathy [Recovered/Resolved]
